FAERS Safety Report 13062854 (Version 1)
Quarter: 2016Q4

REPORT INFORMATION
  Report Type: Spontaneous
  Country: FR (occurrence: FR)
  Receive Date: 20161226
  Receipt Date: 20161226
  Transmission Date: 20170207
  Serious: Yes (Hospitalization, Other)
  Sender: FDA-Public Use
  Company Number: FR-BRISTOL-MYERS SQUIBB COMPANY-BMS-2016-107918

PATIENT
  Age: 83 Year
  Sex: Female

DRUGS (4)
  1. LASILIX                            /00032601/ [Concomitant]
     Active Substance: FUROSEMIDE
     Indication: CARDIAC FAILURE
     Dosage: 10 MG, UNK
     Route: 048
  2. COUMADINE [Suspect]
     Active Substance: WARFARIN SODIUM
     Indication: ATRIAL FIBRILLATION
     Dosage: UNK
     Route: 048
     Dates: end: 20160921
  3. BISOCE [Concomitant]
     Active Substance: BISOPROLOL
     Indication: CARDIAC FAILURE
     Route: 048
  4. CORDARONE [Concomitant]
     Active Substance: AMIODARONE HYDROCHLORIDE
     Indication: ATRIAL FIBRILLATION
     Dosage: UNK
     Route: 048
     Dates: end: 20160921

REACTIONS (4)
  - Renal failure [Unknown]
  - Anaemia [Unknown]
  - Haemoptysis [Recovered/Resolved]
  - Pleural effusion [Unknown]

NARRATIVE: CASE EVENT DATE: 20160921
